FAERS Safety Report 9618605 (Version 1)
Quarter: 2013Q4

REPORT INFORMATION
  Report Type: Spontaneous
  Country: US (occurrence: US)
  Receive Date: 20131014
  Receipt Date: 20131014
  Transmission Date: 20140711
  Serious: No
  Sender: FDA-Public Use
  Company Number: US-PFIZER INC-2013292800

PATIENT
  Age: 62 Year
  Sex: Male
  Weight: 191 kg

DRUGS (8)
  1. LYRICA [Suspect]
     Indication: PAIN
     Dosage: 300 MG, 1X/DAY
     Dates: start: 200912
  2. LYRICA [Suspect]
     Indication: NEUROPATHY PERIPHERAL
  3. INSULIN [Concomitant]
     Dosage: 140 IU, DAILY
  4. SIMVASTATIN [Concomitant]
     Indication: BLOOD CHOLESTEROL INCREASED
     Dosage: 50MG DAILY
  5. LISINOPRIL [Concomitant]
     Indication: HYPERTENSION
     Dosage: 25 MG, DAILY
  6. HYDROCHLOROTHIAZIDE [Concomitant]
     Dosage: UNK
  7. ALLOPURINOL [Concomitant]
     Dosage: 300 MG, DAILY
  8. FUROSEMIDE [Concomitant]
     Dosage: 80 MG, DAILY

REACTIONS (2)
  - Drug effect incomplete [Not Recovered/Not Resolved]
  - Glycosylated haemoglobin increased [Unknown]
